FAERS Safety Report 17536001 (Version 1)
Quarter: 2020Q1

REPORT INFORMATION
  Report Type: Spontaneous
  Country: PT (occurrence: PT)
  Receive Date: 20200313
  Receipt Date: 20200313
  Transmission Date: 20200409
  Serious: Yes (Other)
  Sender: FDA-Public Use
  Company Number: PT-SA-2020SA062631

PATIENT
  Age: 63 Year
  Sex: Male

DRUGS (7)
  1. THYMOGLOBULIN [Suspect]
     Active Substance: LAPINE T-LYMPHOCYTE IMMUNE GLOBULIN
     Indication: IMMUNOSUPPRESSION
     Dosage: 550MG 7 DAYS
     Route: 042
     Dates: start: 20130622, end: 20130628
  2. BASILIXIMAB [Concomitant]
     Active Substance: BASILIXIMAB
     Dosage: UNK
  3. TACROLIMUS. [Concomitant]
     Active Substance: TACROLIMUS
  4. CICLOSPORIN [Concomitant]
     Active Substance: CYCLOSPORINE
  5. MYCOPHENOLATE MOFETIL. [Concomitant]
     Active Substance: MYCOPHENOLATE MOFETIL
  6. TAZOBACTAM [Concomitant]
     Active Substance: TAZOBACTAM
  7. PIPERACILLIN. [Concomitant]
     Active Substance: PIPERACILLIN SODIUM

REACTIONS (1)
  - Haemolytic anaemia [Unknown]

NARRATIVE: CASE EVENT DATE: 20130701
